FAERS Safety Report 15509870 (Version 1)
Quarter: 2018Q4

REPORT INFORMATION
  Report Type: Spontaneous
  Country: US (occurrence: US)
  Receive Date: 20181016
  Receipt Date: 20181016
  Transmission Date: 20190205
  Serious: Yes (Other)
  Sender: FDA-Public Use
  Company Number: None

PATIENT
  Age: 62 Year
  Sex: Male
  Weight: 108.41 kg

DRUGS (1)
  1. EDARAVONE, 30MG [Suspect]
     Active Substance: EDARAVONE
     Indication: AMYOTROPHIC LATERAL SCLEROSIS
     Dosage: 60 MG, 10 DAYS/MONTH, INTRAVENOUS DRIP
     Route: 041
     Dates: start: 20180705, end: 20180911

REACTIONS (2)
  - Therapy cessation [None]
  - Infusion site reaction [None]

NARRATIVE: CASE EVENT DATE: 20180716
